FAERS Safety Report 9516469 (Version 1)
Quarter: 2013Q3

REPORT INFORMATION
  Report Type: Spontaneous
  Country: FR (occurrence: FR)
  Receive Date: 20130911
  Receipt Date: 20130911
  Transmission Date: 20140515
  Serious: Yes (Hospitalization)
  Sender: FDA-Public Use
  Company Number: FR-ASTRAZENECA-2013SE68144

PATIENT
  Sex: Female

DRUGS (12)
  1. INEXIUM [Suspect]
     Indication: GASTROOESOPHAGEAL REFLUX DISEASE
     Dosage: START DATE: AT 8 WEEKS OF AMENORRHEA.
     Route: 048
  2. SERTRALINE [Suspect]
     Dosage: 50 MG EVERY DAY (START:AT 8 WEEKS OF AMENORRHEA)
  3. XANAX [Suspect]
     Dosage: }10 X 0.5 MG EVERY DAY
  4. ZOPICLONE [Suspect]
     Dosage: 15 MG EVERY DAY (START: AT 0 WEEKS OF AMENORRHEA; STOP: AT 8 WEEKS OF AMENORRHEA)
  5. ZOPICLONE [Suspect]
     Dosage: 7.5 MG EVERY DAY (START: AT 8 WEEKS OF AMENORRHEA)
  6. SERESTA [Suspect]
     Dosage: 60 MG EVERY DAY (START: AT THE END OF PREGNANCY)
  7. LEVOTHYROX [Suspect]
     Dosage: DURING ALL THE PREGNANCY.
  8. INSULINE [Suspect]
  9. TERCIAN [Concomitant]
  10. TERCIAN [Concomitant]
  11. CITALOPRAM [Concomitant]
     Dosage: START: 0 WEEKS OF AMENORRHEA; STOP: 8 WEEKS OF AMENORRHEA.
  12. PANTOPRAZOLE [Concomitant]
     Indication: GASTROOESOPHAGEAL REFLUX DISEASE
     Dosage: START: 0 WEEKS OF AMENORRHEA; STOP: 8 WEEKS OF AMENORRHEA.

REACTIONS (3)
  - Placental disorder [Unknown]
  - Diabetes mellitus inadequate control [Unknown]
  - Exposure during pregnancy [Unknown]
